FAERS Safety Report 8180716-4 (Version None)
Quarter: 2012Q1

REPORT INFORMATION
  Report Type: 
  Country: None (occurrence: None)
  Receive Date: 20120302
  Receipt Date: 20120216
  Transmission Date: 20120608
  Serious: Yes (Hospitalization)
  Sender: FDA-Public Use
  Company Number: CN-WATSON-2012-03110

PATIENT
  Age: 38 Year
  Sex: Female

DRUGS (1)
  1. BACLOFEN [Suspect]
     Indication: MUSCLE SPASTICITY
     Dosage: 500 MG, SINGLE
     Route: 065

REACTIONS (8)
  - OVERDOSE [None]
  - HYPOTONIA [None]
  - RESPIRATORY DISORDER [None]
  - BRADYCARDIA [None]
  - DEPRESSED LEVEL OF CONSCIOUSNESS [None]
  - ALTERED STATE OF CONSCIOUSNESS [None]
  - HYPOREFLEXIA [None]
  - VENTRICULAR EXTRASYSTOLES [None]
